FAERS Safety Report 13379537 (Version 1)
Quarter: 2017Q1

REPORT INFORMATION
  Report Type: Spontaneous
  Country: US (occurrence: US)
  Receive Date: 20170328
  Receipt Date: 20170328
  Transmission Date: 20170429
  Serious: Yes (Other)
  Sender: FDA-Public Use
  Company Number: US-MYLANLABS-2017M1016210

PATIENT

DRUGS (2)
  1. METFORMIN HYDROCHLORIDE. [Concomitant]
     Active Substance: METFORMIN HYDROCHLORIDE
     Indication: DIABETES MELLITUS
     Dosage: 500 MG, 4X (1000MG TWICE DAILY)
     Route: 048
  2. ALLOPURINOL TABLETS, USP [Suspect]
     Active Substance: ALLOPURINOL
     Indication: TUMOUR LYSIS SYNDROME
     Dosage: 1500 MG, QD
     Route: 048
     Dates: start: 20170204, end: 20170218

REACTIONS (4)
  - Immunosuppression [Recovering/Resolving]
  - Accidental overdose [Recovered/Resolved]
  - Neutropenia [Recovering/Resolving]
  - Drug dispensing error [Recovered/Resolved]

NARRATIVE: CASE EVENT DATE: 201702
